FAERS Safety Report 21863800 (Version 2)
Quarter: 2023Q1

REPORT INFORMATION
  Report Type: Report from Study
  Country: US (occurrence: US)
  Receive Date: 20230116
  Receipt Date: 20230116
  Transmission Date: 20230418
  Serious: No
  Sender: FDA-Public Use
  Company Number: US-ABBVIE-4269461

PATIENT
  Sex: Female
  Weight: 100.69 kg

DRUGS (4)
  1. HUMIRA [Suspect]
     Active Substance: ADALIMUMAB
     Indication: Psoriasis
     Dosage: 40 MILLIGRAM
     Route: 058
     Dates: start: 20211202, end: 20230110
  2. HUMIRA [Suspect]
     Active Substance: ADALIMUMAB
     Indication: Psoriatic arthropathy
  3. HUMIRA [Suspect]
     Active Substance: ADALIMUMAB
     Indication: Ankylosing spondylitis
  4. IBUPROFEN [Concomitant]
     Active Substance: IBUPROFEN
     Indication: Tinnitus

REACTIONS (9)
  - Nervous system disorder [Not Recovered/Not Resolved]
  - C-reactive protein increased [Unknown]
  - Migraine [Not Recovered/Not Resolved]
  - Tinnitus [Not Recovered/Not Resolved]
  - Blood iron decreased [Unknown]
  - Drug ineffective [Unknown]
  - White blood cell count increased [Unknown]
  - Diplopia [Recovered/Resolved]
  - Platelet count increased [Unknown]

NARRATIVE: CASE EVENT DATE: 20220101
